FAERS Safety Report 6097364-2 (Version None)
Quarter: 2009Q1

REPORT INFORMATION
  Report Type: 
  Country: None (occurrence: None)
  Receive Date: 20090227
  Receipt Date: 20080104
  Transmission Date: 20090719
  Serious: No
  Sender: FDA-Public Use
  Company Number: A0701460A

PATIENT
  Age: 55 Year
  Sex: Male

DRUGS (3)
  1. IMITREX [Suspect]
     Indication: MIGRAINE
     Dosage: 6MG VARIABLE DOSE
     Route: 058
  2. IMITREX [Suspect]
     Dosage: 100MG VARIABLE DOSE
     Route: 048
     Dates: start: 20080103
  3. ATENOLOL [Concomitant]

REACTIONS (2)
  - DRUG ADMINISTRATION ERROR [None]
  - DRUG INEFFECTIVE [None]
